FAERS Safety Report 25132699 (Version 1)
Quarter: 2025Q1

REPORT INFORMATION
  Report Type: Report from Study
  Country: US (occurrence: US)
  Receive Date: 20250328
  Receipt Date: 20250328
  Transmission Date: 20250409
  Serious: Yes (Other)
  Sender: EMD SERONO INC
  Company Number: US-Merck Healthcare KGaA-2025015083

PATIENT
  Age: 67 Year
  Sex: Female

DRUGS (2)
  1. REBIF [Suspect]
     Active Substance: INTERFERON BETA-1A
     Indication: Multiple sclerosis
     Dosage: REBIJECT II
     Dates: start: 20030714
  2. REBIF [Suspect]
     Active Substance: INTERFERON BETA-1A

REACTIONS (4)
  - Pulmonary sarcoidosis [Unknown]
  - Neurosarcoidosis [Unknown]
  - Transient global amnesia [Unknown]
  - Cervical radiculopathy [Unknown]

NARRATIVE: CASE EVENT DATE: 20180716
